FAERS Safety Report 7755089-9 (Version None)
Quarter: 2011Q3

REPORT INFORMATION
  Report Type: 
  Country: None (occurrence: None)
  Receive Date: 20110914
  Receipt Date: 20110908
  Transmission Date: 20111222
  Serious: Yes (Other)
  Sender: FDA-Public Use
  Company Number: 1000022069

PATIENT
  Age: 55 Year
  Sex: Female
  Weight: 99.79 kg

DRUGS (17)
  1. REQUIP [Concomitant]
  2. SYMBICORT [Concomitant]
  3. AMLODIPINE [Concomitant]
  4. ALBUTEROL [Concomitant]
  5. DILANTIN [Concomitant]
  6. METFORMIN HCL [Concomitant]
  7. DIAZEPAM [Concomitant]
  8. PRAVASTATIN [Concomitant]
  9. MORPHINE [Concomitant]
  10. PRILOSEC [Concomitant]
  11. DALIRESP [Suspect]
     Indication: BRONCHITIS CHRONIC
     Dosage: 500 MCG (500 MCG,1 IN 1 D),ORAL
     Route: 048
     Dates: start: 20110630, end: 20110701
  12. DALIRESP [Suspect]
     Indication: CHRONIC OBSTRUCTIVE PULMONARY DISEASE
     Dosage: 500 MCG (500 MCG,1 IN 1 D),ORAL
     Route: 048
     Dates: start: 20110630, end: 20110701
  13. GABAPENTIN [Concomitant]
  14. FLONASE [Concomitant]
  15. PAROXETINE [Concomitant]
  16. PERCOCET [Concomitant]
  17. FLEXERIL [Concomitant]

REACTIONS (1)
  - CONVULSION [None]
